FAERS Safety Report 21782358 (Version 6)
Quarter: 2023Q2

REPORT INFORMATION
  Report Type: Spontaneous
  Country: US (occurrence: US)
  Receive Date: 20221227
  Receipt Date: 20230622
  Transmission Date: 20230721
  Serious: Yes (Other)
  Sender: FDA-Public Use
  Company Number: US-PFIZER INC-PV202200130164

PATIENT
  Age: 78 Year
  Sex: Female
  Weight: 101.2 kg

DRUGS (2)
  1. IBRANCE [Suspect]
     Active Substance: PALBOCICLIB
     Indication: Breast cancer
     Dosage: 75 MG, CYCLIC (DAILY FOR 21 DAYS ON + 14 DAYS OFF)
     Route: 048
  2. FASLODEX [Concomitant]
     Active Substance: FULVESTRANT
     Dosage: UNK

REACTIONS (4)
  - Neutropenia [Unknown]
  - Off label use [Unknown]
  - Toxicity to various agents [Unknown]
  - Hepatic enzyme increased [Recovered/Resolved]
